FAERS Safety Report 9238111 (Version 1)
Quarter: 2013Q1

REPORT INFORMATION
  Report Type: Spontaneous
  Country: US (occurrence: None)
  Receive Date: 20121106
  Receipt Date: 20121106
  Transmission Date: 20140127
  Serious: No
  Sender: FDA-Public Use
  Company Number: 1000037749

PATIENT
  Sex: 0

DRUGS (10)
  1. DALIRESP [Suspect]
     Indication: CHRONIC OBSTRUCTIVE PULMONARY DISEASE
     Dosage: 500 MCG (500 MCG, 1 IN 1 D, ORAL
     Route: 048
     Dates: start: 201205
  2. VIIBRYD (VILAZODONE) (VILAZODONE) [Concomitant]
  3. SEROQUEL (QUEETIAPINE FUMARATE) (QUETIAPINE FUMARATE) [Concomitant]
  4. TOPAMAX (TOPIRAMATE) (TOPIRAMATE) [Concomitant]
  5. SYMBICORT (BUDESONIDE W/FORMOTEROL FUMARATE) (BUDESONIDE W/FORMOTEROL FUMARATE) [Concomitant]
  6. SPIRIVA (TIOTROPIUM BROMIDE) (TIOTROPIUM BROMIDE) [Concomitant]
  7. ALBUTEROL (ALBUTEROL) (ALBUTEROL) [Concomitant]
  8. SYNTHROID (LEVOTHYROXINE SODIUM) (LEVOTHYROXINE SODIUM) [Concomitant]
  9. NECON (NORETHINDRONE/ETHINYL ESTRADIOL) (NORETHINDRONE/ETHINYL ESTRADIOL) [Concomitant]
  10. FISH OIL (FISH OIL) (FISH OIL) [Concomitant]

REACTIONS (1)
  - Mood altered [None]
